FAERS Safety Report 21074149 (Version 2)
Quarter: 2022Q3

REPORT INFORMATION
  Report Type: Other
  Country: US (occurrence: None)
  Receive Date: 20220713
  Receipt Date: 20220713
  Transmission Date: 20221027
  Serious: Yes (Hospitalization, Other)
  Sender: FDA-Public Use
  Company Number: US-ROCHE-3131856

PATIENT
  Age: 43 Year
  Sex: Female
  Weight: 86.260 kg

DRUGS (1)
  1. OCREVUS [Suspect]
     Active Substance: OCRELIZUMAB
     Indication: Relapsing-remitting multiple sclerosis
     Dosage: THEN 600 MG EVERY 6 MONTHS
     Route: 042
     Dates: start: 20191209

REACTIONS (10)
  - Pneumonia [Recovered/Resolved]
  - COVID-19 [Not Recovered/Not Resolved]
  - Fungal infection [Recovered/Resolved]
  - Candida infection [Recovered/Resolved]
  - Acne [Not Recovered/Not Resolved]
  - Muscle atrophy [Recovered/Resolved]
  - Back pain [Recovered/Resolved]
  - Inflammation [Unknown]
  - Fatigue [Recovered/Resolved]
  - Skin exfoliation [Unknown]

NARRATIVE: CASE EVENT DATE: 20211201
